FAERS Safety Report 24525316 (Version 1)
Quarter: 2024Q4

REPORT INFORMATION
  Report Type: Spontaneous
  Country: CN (occurrence: CN)
  Receive Date: 20241019
  Receipt Date: 20241019
  Transmission Date: 20250115
  Serious: Yes (Life-Threatening)
  Sender: ROCHE
  Company Number: CN-BoehringerIngelheim-2024-BI-057427

PATIENT
  Age: 82 Year
  Sex: Female
  Weight: 46.0 kg

DRUGS (2)
  1. ALTEPLASE [Suspect]
     Active Substance: ALTEPLASE
     Indication: Cerebral infarction
     Route: 042
     Dates: start: 20240916, end: 20240916
  2. ALTEPLASE [Suspect]
     Active Substance: ALTEPLASE
     Route: 042
     Dates: start: 20240916, end: 20240916

REACTIONS (4)
  - Cerebral haemorrhage [Recovering/Resolving]
  - Pleural effusion [Recovering/Resolving]
  - Pneumonia [Recovering/Resolving]
  - Middle lobe syndrome [Recovering/Resolving]

NARRATIVE: CASE EVENT DATE: 20240917
